FAERS Safety Report 5253919-6 (Version None)
Quarter: 2007Q1

REPORT INFORMATION
  Report Type: 
  Country: None (occurrence: None)
  Receive Date: 20070228
  Receipt Date: 20070228
  Transmission Date: 20070707
  Serious: Yes (Death)
  Sender: FDA-Public Use
  Company Number: None

PATIENT
  Sex: Female
  Weight: 47.6277 kg

DRUGS (6)
  1. OXANDRIN [Suspect]
     Indication: WEIGHT DECREASED
     Dosage: 10MG PO BID
     Route: 048
     Dates: start: 20061027, end: 20070122
  2. OXALIPLATIN [Concomitant]
  3. LEUCOVORIN CALCIUM [Concomitant]
  4. FLUOROURACIL [Concomitant]
  5. BEVACIZUMAB [Concomitant]
  6. ARANESP [Concomitant]

REACTIONS (1)
  - DEATH [None]
